FAERS Safety Report 14926212 (Version 1)
Quarter: 2018Q2

REPORT INFORMATION
  Report Type: Spontaneous
  Country: TR (occurrence: TR)
  Receive Date: 20180523
  Receipt Date: 20180523
  Transmission Date: 20180711
  Serious: Yes (Hospitalization, Other)
  Sender: FDA-Public Use
  Company Number: TR-LUPIN PHARMACEUTICALS INC.-2018-02507

PATIENT
  Age: 49 Year
  Sex: Male

DRUGS (9)
  1. ZUCLOPENTHIXOL [Suspect]
     Active Substance: ZUCLOPENTHIXOL
     Indication: SEDATION
     Dosage: 50 MG/ML, ON FIRST DAY OF ADMISSION
     Route: 030
  2. HALOPERIDOL. [Suspect]
     Active Substance: HALOPERIDOL
     Dosage: 10 MG, UNK (SECOND DAY OF ADMISSION)
     Route: 030
  3. HALOPERIDOL. [Suspect]
     Active Substance: HALOPERIDOL
     Indication: AGITATION
     Dosage: 5 MG, UNK (FIRST DAY OF ADMISSION)
     Route: 030
  4. CHLORPROMAZINE. [Suspect]
     Active Substance: CHLORPROMAZINE
     Indication: PSYCHOTIC SYMPTOM
     Dosage: 25 MG, UNK (FIRST DAY OF ADMISSION)
     Route: 030
  5. HALOPERIDOL. [Suspect]
     Active Substance: HALOPERIDOL
     Indication: PSYCHOTIC SYMPTOM
     Dosage: 5 MG, UNK (FIRST DAY OF ADMISSION)
     Route: 030
  6. CHLORPROMAZINE. [Suspect]
     Active Substance: CHLORPROMAZINE
     Dosage: 50 MG, UNK (FIRST DAY OF ADMISSION)
     Route: 030
  7. QUETIAPINE. [Suspect]
     Active Substance: QUETIAPINE
     Indication: PSYCHOTIC SYMPTOM
     Dosage: 200 MG, QD (FIRST DAY OF ADMISSION)
     Route: 065
  8. OLANZAPINE. [Suspect]
     Active Substance: OLANZAPINE
     Indication: PSYCHOTIC SYMPTOM
     Dosage: 20 MG, QD (SECOND DAY OF ADMISSION)
     Route: 065
  9. CLONAZEPAM. [Concomitant]
     Active Substance: CLONAZEPAM
     Indication: PRODUCT USED FOR UNKNOWN INDICATION
     Dosage: 2 MG, UNK (FIRST DAY OF ADMISSION)
     Route: 065

REACTIONS (1)
  - Neuroleptic malignant syndrome [Recovering/Resolving]
